FAERS Safety Report 22233078 (Version 1)
Quarter: 2023Q2

REPORT INFORMATION
  Report Type: Spontaneous
  Country: US (occurrence: None)
  Receive Date: 20230420
  Receipt Date: 20230420
  Transmission Date: 20230721
  Serious: No
  Sender: FDA-Public Use
  Company Number: US-ROCHE-3038174

PATIENT
  Sex: Male

DRUGS (2)
  1. ESBRIET [Suspect]
     Active Substance: PIRFENIDONE
     Indication: Pulmonary fibrosis
     Route: 048
     Dates: start: 202111
  2. OFEV [Concomitant]
     Active Substance: NINTEDANIB

REACTIONS (5)
  - Fatigue [Unknown]
  - Apathy [Unknown]
  - Cough [Unknown]
  - Dizziness [Recovered/Resolved]
  - Insomnia [Unknown]
